FAERS Safety Report 5343557-9 (Version None)
Quarter: 2007Q2

REPORT INFORMATION
  Report Type: 
  Country: None (occurrence: None)
  Receive Date: 20070531
  Receipt Date: 20070521
  Transmission Date: 20071010
  Serious: Yes (Death)
  Sender: FDA-Public Use
  Company Number: 2007SP009821

PATIENT
  Sex: Male

DRUGS (1)
  1. NOXAFIL [Suspect]
     Indication: PROPHYLAXIS

REACTIONS (3)
  - PNEUMONIA [None]
  - SEPTIC SHOCK [None]
  - TREATMENT NONCOMPLIANCE [None]
